FAERS Safety Report 6008084-4 (Version None)
Quarter: 2008Q4

REPORT INFORMATION
  Report Type: 
  Country: None (occurrence: None)
  Receive Date: 20081217
  Receipt Date: 20080818
  Transmission Date: 20090506
  Serious: No
  Sender: FDA-Public Use
  Company Number: US-ASTRAZENECA-2008UW16849

PATIENT
  Age: 47 Year
  Sex: Female
  Weight: 88.4 kg

DRUGS (3)
  1. CRESTOR [Suspect]
     Indication: BLOOD CHOLESTEROL INCREASED
     Route: 048
     Dates: start: 20080707, end: 20080815
  2. DARVOCET [Concomitant]
  3. PAROXACAM [Concomitant]
     Indication: ARTHRALGIA

REACTIONS (4)
  - CHROMATURIA [None]
  - NAUSEA [None]
  - OCULAR ICTERUS [None]
  - PAIN IN EXTREMITY [None]
